FAERS Safety Report 5704300-4 (Version None)
Quarter: 2008Q2

REPORT INFORMATION
  Report Type: 
  Country: None (occurrence: None)
  Receive Date: 20080414
  Receipt Date: 20080411
  Transmission Date: 20081010
  Serious: Yes (Hospitalization)
  Sender: FDA-Public Use
  Company Number: A0680717A

PATIENT
  Age: 45 Year
  Sex: Female
  Weight: 100 kg

DRUGS (3)
  1. ALLI [Suspect]
     Indication: WEIGHT LOSS DIET
     Route: 048
     Dates: start: 20070731
  2. VITAMIN B COMPLEX CAP [Concomitant]
  3. CYMBALTA [Concomitant]

REACTIONS (27)
  - ABDOMINAL DISTENSION [None]
  - ABDOMINAL PAIN UPPER [None]
  - ANXIETY [None]
  - CONSTIPATION [None]
  - DYSPHAGIA [None]
  - EMOTIONAL DISTRESS [None]
  - FATIGUE [None]
  - FEELING ABNORMAL [None]
  - GASTROINTESTINAL DISORDER [None]
  - HEADACHE [None]
  - HYPERPHAGIA [None]
  - IMPATIENCE [None]
  - IRRITABLE BOWEL SYNDROME [None]
  - MALAISE [None]
  - NASOPHARYNGITIS [None]
  - PAIN [None]
  - PHARYNGOLARYNGEAL PAIN [None]
  - POOR QUALITY SLEEP [None]
  - PRODUCTIVE COUGH [None]
  - SENSORY DISTURBANCE [None]
  - STRESS [None]
  - TEMPERATURE REGULATION DISORDER [None]
  - THERAPEUTIC RESPONSE UNEXPECTED [None]
  - TINNITUS [None]
  - VOMITING [None]
  - WEIGHT INCREASED [None]
  - WHITE BLOOD CELL COUNT DECREASED [None]
